FAERS Safety Report 4323758-9 (Version None)
Quarter: 2004Q1

REPORT INFORMATION
  Report Type: 
  Country: None (occurrence: None)
  Receive Date: 20040323
  Receipt Date: 20040308
  Transmission Date: 20041129
  Serious: Yes (Hospitalization)
  Sender: FDA-Public Use
  Company Number: 2002070557

PATIENT
  Age: 79 Year
  Sex: Male
  Weight: 66 kg

DRUGS (9)
  1. NORVASC [Suspect]
     Indication: ILL-DEFINED DISORDER
     Dosage: 5 MG , ORAL
     Route: 048
     Dates: start: 19900101, end: 20020322
  2. MOXIFLOXACIN HCL [Concomitant]
  3. ALLOPURINOL [Concomitant]
  4. FUROSEMIDE [Concomitant]
  5. THEOPHYLLINE [Concomitant]
  6. IPRATROPIUM BROMIDE [Concomitant]
  7. SALBUTAMOL (SALBUTAMOL) [Concomitant]
  8. FLUTICASONE PROPIONATE (FLUTICANSONE PROPIONATE) [Concomitant]
  9. CALCITRIOL [Concomitant]

REACTIONS (11)
  - CHRONIC OBSTRUCTIVE AIRWAYS DISEASE EXACERBATED [None]
  - DRUG SPECIFIC ANTIBODY PRESENT [None]
  - EPISTAXIS [None]
  - GINGIVAL BLEEDING [None]
  - HAEMATOMA [None]
  - HAEMATURIA [None]
  - HAEMORRHAGE [None]
  - HEADACHE [None]
  - MENINGISM [None]
  - THROMBOCYTOPENIA [None]
  - WHITE BLOOD CELL COUNT INCREASED [None]
